FAERS Safety Report 7010435-9 (Version None)
Quarter: 2010Q3

REPORT INFORMATION
  Report Type: 
  Country: None (occurrence: None)
  Receive Date: 20100923
  Receipt Date: 20100916
  Transmission Date: 20110219
  Serious: Yes (Other)
  Sender: FDA-Public Use
  Company Number: US-TEVA-248701USA

PATIENT
  Sex: Female
  Weight: 73 kg

DRUGS (9)
  1. COPAXONE [Suspect]
     Indication: MULTIPLE SCLEROSIS
     Route: 058
  2. INTERFERON BETA-1A [Suspect]
     Indication: MULTIPLE SCLEROSIS
     Route: 058
     Dates: start: 20050112, end: 20090101
  3. INTERFERON BETA-1A [Suspect]
     Route: 058
     Dates: start: 20050112, end: 20090101
  4. ATENOLOL [Concomitant]
     Indication: PALPITATIONS
  5. ESTRADIOL [Concomitant]
     Indication: HORMONE REPLACEMENT THERAPY
  6. TEMAZEPAM [Concomitant]
     Indication: SLEEP DISORDER
  7. DIAZEPAM [Concomitant]
     Indication: ANXIETY
  8. IGH BLOOD PRESSURE MEDICATION [Concomitant]
     Indication: HYPERTENSION
  9. CITALOPRAM HYDROBROMIDE [Concomitant]
     Indication: ANXIETY

REACTIONS (6)
  - AORTIC VALVE DISEASE [None]
  - CATARACT [None]
  - FLUID RETENTION [None]
  - MITRAL VALVE DISEASE [None]
  - MYALGIA [None]
  - TEMPORAL ARTERITIS [None]
